FAERS Safety Report 10571764 (Version 3)
Quarter: 2014Q4

REPORT INFORMATION
  Report Type: Spontaneous
  Country: US (occurrence: US)
  Receive Date: 20141107
  Receipt Date: 20141231
  Transmission Date: 20150529
  Serious: Yes (Death, Hospitalization, Other)
  Sender: FDA-Public Use
  Company Number: US-009507513-1411USA003022

PATIENT
  Sex: Female
  Weight: 54.88 kg

DRUGS (5)
  1. METFORMIN [Concomitant]
     Active Substance: METFORMIN HYDROCHLORIDE
     Indication: TYPE 2 DIABETES MELLITUS
     Dosage: 1000 MG, UNK
     Dates: start: 20100304, end: 20140716
  2. JANUVIA [Suspect]
     Active Substance: SITAGLIPTIN PHOSPHATE
     Indication: TYPE 2 DIABETES MELLITUS
     Dosage: 100 MG, QD
     Route: 048
     Dates: start: 20100621, end: 20140716
  3. QUINAPRIL HYDROCHLORIDE. [Concomitant]
     Active Substance: QUINAPRIL HYDROCHLORIDE
     Indication: HYPERTENSION
     Dosage: UNK
     Dates: start: 20090428, end: 201108
  4. METOPROLOL [Concomitant]
     Active Substance: METOPROLOL
     Indication: HYPERTENSION
     Dosage: 25 MG, BID
     Route: 048
     Dates: start: 20100427, end: 201112
  5. GLIMEPIRIDE. [Concomitant]
     Active Substance: GLIMEPIRIDE
     Indication: TYPE 2 DIABETES MELLITUS
     Dosage: 4 MG, BID
     Route: 048
     Dates: start: 200902, end: 201306

REACTIONS (24)
  - Metastases to lung [Unknown]
  - Nephrosclerosis [Unknown]
  - Hyperlipidaemia [Unknown]
  - Depression [Unknown]
  - Oedema peripheral [Unknown]
  - Bronchopneumonia [Unknown]
  - Metastases to liver [Unknown]
  - Cardiac pacemaker insertion [Unknown]
  - Hypothyroidism [Unknown]
  - Metastases to adrenals [Unknown]
  - Peptic ulcer [Unknown]
  - Diabetes mellitus inadequate control [Unknown]
  - Anxiety [Unknown]
  - Pancreatic carcinoma metastatic [Fatal]
  - Hypertensive heart disease [Unknown]
  - Aortic arteriosclerosis [Unknown]
  - Depression [Unknown]
  - Cardiac disorder [Unknown]
  - Insomnia [Unknown]
  - Rectal polyp [Unknown]
  - Metastases to lymph nodes [Unknown]
  - Exostosis [Unknown]
  - Cystitis [Unknown]
  - Anaemia [Unknown]

NARRATIVE: CASE EVENT DATE: 20100621
